FAERS Safety Report 4693798-9 (Version None)
Quarter: 2005Q2

REPORT INFORMATION
  Report Type: 
  Country: None (occurrence: None)
  Receive Date: 20050616
  Receipt Date: 20050607
  Transmission Date: 20051028
  Serious: Yes (Death, Other)
  Sender: FDA-Public Use
  Company Number: 2005-06-0514

PATIENT
  Age: 46 Year
  Sex: Female

DRUGS (1)
  1. INTERFERON ALPHA [Suspect]
     Indication: CHRONIC MYELOID LEUKAEMIA
     Dosage: 8 MU QD

REACTIONS (7)
  - BLISTER [None]
  - LIMB DISCOMFORT [None]
  - POST PROCEDURAL COMPLICATION [None]
  - RAYNAUD'S PHENOMENON [None]
  - SEPSIS [None]
  - SKIN DISCOLOURATION [None]
  - SKIN EXFOLIATION [None]
